FAERS Safety Report 17443462 (Version 1)
Quarter: 2020Q1

REPORT INFORMATION
  Report Type: Spontaneous
  Country: US (occurrence: US)
  Receive Date: 20200220
  Receipt Date: 20200220
  Transmission Date: 20200409
  Serious: Yes (Life-Threatening, Hospitalization, Disabling, Other)
  Sender: FDA-Public Use
  Company Number: None

PATIENT
  Age: 18 Month
  Sex: Female
  Weight: 17.55 kg

DRUGS (2)
  1. CHILDREN^S MULTIVITAMIN [Concomitant]
  2. SLO-BID [Suspect]
     Active Substance: THEOPHYLLINE ANHYDROUS
     Indication: ASTHMA
     Dosage: ?          QUANTITY:1 CAPSULE(S);?
     Route: 048

REACTIONS (6)
  - Status epilepticus [None]
  - Viral infection [None]
  - Crying [None]
  - Coma [None]
  - Pyrexia [None]
  - Depressed level of consciousness [None]

NARRATIVE: CASE EVENT DATE: 19860517
